FAERS Safety Report 25084833 (Version 2)
Quarter: 2025Q2

REPORT INFORMATION
  Report Type: Spontaneous
  Country: RU (occurrence: RU)
  Receive Date: 20250317
  Receipt Date: 20250430
  Transmission Date: 20250716
  Serious: Yes (Hospitalization, Other)
  Sender: VERTEX
  Company Number: None

PATIENT
  Age: 4 Year
  Sex: Female
  Weight: 16 kg

DRUGS (4)
  1. ORKAMBI [Suspect]
     Active Substance: IVACAFTOR\LUMACAFTOR
     Indication: Cystic fibrosis
     Dosage: 1 SACHET (100 MG LUMACAFTOR/125MG IVACAFTOR), BID
     Route: 048
     Dates: start: 202301
  2. PANCRELIPASE [Concomitant]
     Active Substance: PANCRELIPASE
     Indication: Cystic fibrosis
     Route: 048
  3. Tigerase [Concomitant]
     Indication: Cystic fibrosis
  4. Exhol [Concomitant]
     Indication: Cystic fibrosis
     Route: 048

REACTIONS (2)
  - Bronchopulmonary disease [Not Recovered/Not Resolved]
  - Drug ineffective [Unknown]
